FAERS Safety Report 15878825 (Version 10)
Quarter: 2019Q3

REPORT INFORMATION
  Report Type: Report from Study
  Country: US (occurrence: US)
  Receive Date: 20190128
  Receipt Date: 20190910
  Transmission Date: 20191004
  Serious: Yes (Hospitalization)
  Sender: FDA-Public Use
  Company Number: US-ROCHE-2250672

PATIENT
  Age: 57 Year
  Sex: Female
  Weight: 75.5 kg

DRUGS (19)
  1. NIRAPARIB [Suspect]
     Active Substance: NIRAPARIB
     Indication: OVARIAN CANCER
     Dosage: ON DAY 1-28 OF EACH 28 DAYS CYCLE?MOST RECENT DOSE OF NIRAPARIB PRIOR TO SAE ONSET ON 14/JAN/2019?MO
     Route: 048
     Dates: start: 20190110
  2. LOPERAMIDE [Concomitant]
     Active Substance: LOPERAMIDE
     Indication: DIARRHOEA
     Route: 048
     Dates: start: 20190228
  3. ONDANSETRON [Concomitant]
     Active Substance: ONDANSETRON
     Indication: NAUSEA
     Route: 048
     Dates: start: 201712
  4. MORPHINE SULFATE. [Concomitant]
     Active Substance: MORPHINE SULFATE
     Indication: CANCER PAIN
     Route: 048
     Dates: start: 20190123
  5. LIDOCAINE. [Concomitant]
     Active Substance: LIDOCAINE
     Route: 061
     Dates: start: 20180131
  6. ZOFRAN [Concomitant]
     Active Substance: ONDANSETRON HYDROCHLORIDE
     Indication: PREMEDICATION
     Route: 042
     Dates: start: 20190110, end: 20190110
  7. LEVOFLOXACIN. [Concomitant]
     Active Substance: LEVOFLOXACIN
     Indication: LUNG INFECTION
     Route: 048
     Dates: start: 20190228, end: 20190304
  8. COBIMETINIB. [Suspect]
     Active Substance: COBIMETINIB
     Indication: OVARIAN CANCER
     Dosage: DAY 1-21 OF EACH 28 DAYS CYCLE.?MOST RECENT DOSE OF COBIMETINIB PRIOR TO SAE ONSET ON 14/JAN/2019?MO
     Route: 048
     Dates: start: 20190110
  9. TRAMADOL. [Concomitant]
     Active Substance: TRAMADOL
     Indication: BACK PAIN
     Route: 048
     Dates: start: 20181218
  10. GABAPENTIN. [Concomitant]
     Active Substance: GABAPENTIN
     Indication: NEUROPATHY PERIPHERAL
     Route: 048
     Dates: start: 2018
  11. MEDROL [Concomitant]
     Active Substance: METHYLPREDNISOLONE
     Indication: SKIN INFECTION
     Route: 048
     Dates: start: 20190228
  12. IBUPROFEN. [Concomitant]
     Active Substance: IBUPROFEN
     Indication: BACK PAIN
  13. COLESTIPOL [Concomitant]
     Active Substance: COLESTIPOL
     Indication: DIARRHOEA
     Route: 048
     Dates: start: 20190228
  14. ATEZOLIZUMAB. [Suspect]
     Active Substance: ATEZOLIZUMAB
     Indication: OVARIAN CANCER
     Dosage: MOST RECENT DOSE PRIOR TO SAE ON 10/JAN/2019?MOST RECENT DOSE PRIOR TO VOMITING ONSET ON 07/FEB/2019
     Route: 042
     Dates: start: 20190110
  15. IBUPROFEN. [Concomitant]
     Active Substance: IBUPROFEN
     Indication: ABDOMINAL PAIN
     Route: 048
     Dates: start: 201712
  16. ATORVASTATIN CALCIUM. [Concomitant]
     Active Substance: ATORVASTATIN CALCIUM
     Indication: HYPERLIPIDAEMIA
     Route: 048
     Dates: start: 2018
  17. MORPHINE SULFATE. [Concomitant]
     Active Substance: MORPHINE SULFATE
     Indication: BREAKTHROUGH PAIN
     Route: 048
     Dates: start: 20190122
  18. POTASSIUM CHLORIDE. [Concomitant]
     Active Substance: POTASSIUM CHLORIDE
     Dosage: 20 OTHER
     Route: 048
     Dates: start: 20190228
  19. MAGNESIUM OXIDE. [Concomitant]
     Active Substance: MAGNESIUM OXIDE
     Route: 048
     Dates: start: 20190228

REACTIONS (2)
  - Vomiting [Recovered/Resolved]
  - Clostridium difficile infection [Recovered/Resolved]

NARRATIVE: CASE EVENT DATE: 20190115
